FAERS Safety Report 15658060 (Version 2)
Quarter: 2019Q3

REPORT INFORMATION
  Report Type: Report from Study
  Country: IN (occurrence: IN)
  Receive Date: 20181126
  Receipt Date: 20190705
  Transmission Date: 20191004
  Serious: Yes (Other)
  Sender: FDA-Public Use
  Company Number: PHHY2018IN152899

PATIENT
  Age: 23 Year
  Sex: Male

DRUGS (6)
  1. SCAPHO [Suspect]
     Active Substance: SECUKINUMAB
     Indication: AXIAL SPONDYLOARTHRITIS
     Dosage: 150 MG, QW
     Route: 058
     Dates: start: 20181015
  2. OLVANCE [Concomitant]
     Dosage: 40 MG, QD
     Route: 048
  3. SCAPHO [Suspect]
     Active Substance: SECUKINUMAB
     Indication: SACROILIITIS
     Dosage: 150 MG, QW
     Route: 058
     Dates: start: 20181022
  4. OLVANCE [Concomitant]
     Indication: BLOOD PRESSURE INCREASED
     Dosage: 20 MG, QD
     Route: 048
  5. SCAPHO [Suspect]
     Active Substance: SECUKINUMAB
     Dosage: 150 MG, QW
     Route: 058
     Dates: start: 20181103
  6. SCAPHO [Suspect]
     Active Substance: SECUKINUMAB
     Dosage: 150 MG, QW
     Route: 058
     Dates: start: 20181117, end: 20181117

REACTIONS (10)
  - Concomitant disease aggravated [Not Recovered/Not Resolved]
  - Urinary tract infection bacterial [Unknown]
  - Blood creatinine increased [Not Recovered/Not Resolved]
  - Glucose urine present [Unknown]
  - Pain [Recovered/Resolved]
  - Blood pressure increased [Not Recovered/Not Resolved]
  - Drug ineffective [Unknown]
  - Food poisoning [Recovered/Resolved]
  - Diarrhoea [Recovered/Resolved]
  - Product use in unapproved indication [Unknown]

NARRATIVE: CASE EVENT DATE: 20181103
